FAERS Safety Report 6754163-3 (Version None)
Quarter: 2010Q2

REPORT INFORMATION
  Report Type: 
  Country: None (occurrence: None)
  Receive Date: 20100603
  Receipt Date: 20100524
  Transmission Date: 20101027
  Serious: Yes (Hospitalization)
  Sender: FDA-Public Use
  Company Number: PHHY2010JP25208

PATIENT
  Sex: Female
  Weight: 75 kg

DRUGS (14)
  1. DIOVAN [Suspect]
     Dosage: 80 MG, QD
     Route: 048
     Dates: start: 20081208, end: 20091203
  2. CANDESARTAN CILEXETIL [Concomitant]
     Indication: HYPERTENSION
     Dosage: 8 MG, UNK
     Route: 048
     Dates: start: 20081006, end: 20091208
  3. LASIX [Concomitant]
     Indication: HYPERTENSION
     Dosage: 20 MG, UNK
     Route: 048
     Dates: start: 20081006, end: 20090830
  4. CALBLOCK [Concomitant]
     Indication: HYPERTENSION
     Dosage: 16 MG, UNK
     Route: 048
     Dates: start: 20081006, end: 20081208
  5. CARNACULIN [Concomitant]
     Indication: HYPERTENSION
     Dosage: 75 MG, UNK
     Route: 048
     Dates: start: 20081006, end: 20081208
  6. FLUITRAN [Concomitant]
     Indication: HYPERTENSION
     Dosage: 2 MG, UNK
     Route: 048
     Dates: start: 20081006, end: 20090727
  7. CATAPRES [Concomitant]
     Indication: HYPERTENSION
     Dosage: 225 UG, UNK
     Route: 048
     Dates: start: 20090831, end: 20090912
  8. KREMEZIN [Concomitant]
     Indication: HYPERTENSION
     Dosage: 6 G, UNK
     Route: 048
     Dates: start: 20081006
  9. AMLODIN [Concomitant]
     Indication: HYPERTENSION
     Dosage: 5 MG, UNK
     Route: 048
     Dates: start: 20081208, end: 20091203
  10. ALOSITOL [Concomitant]
     Dosage: 200 MG, UNK
     Route: 048
     Dates: start: 20081006, end: 20091203
  11. MIGLITOL [Concomitant]
     Dosage: 150 MG, UNK
     Route: 048
     Dates: start: 20081006, end: 20091203
  12. MITIGLINIDE [Concomitant]
     Dosage: 30 MG, UNK
     Route: 048
     Dates: start: 20081006, end: 20091203
  13. FERROMIA [Concomitant]
     Dosage: 50 MG, UNK
     Route: 048
     Dates: start: 20081006, end: 20090727
  14. CINAL [Concomitant]
     Dosage: 200 MG, UNK
     Route: 048
     Dates: start: 20081006, end: 20090727

REACTIONS (3)
  - CARDIAC FAILURE CONGESTIVE [None]
  - HYPERKALAEMIA [None]
  - PROTEIN URINE PRESENT [None]
